FAERS Safety Report 9285421 (Version 1)
Quarter: 2013Q2

REPORT INFORMATION
  Report Type: Spontaneous
  Country: US (occurrence: US)
  Receive Date: 20130513
  Receipt Date: 20130513
  Transmission Date: 20140414
  Serious: No
  Sender: FDA-Public Use
  Company Number: US-PFIZER INC-2013146796

PATIENT
  Age: 51 Year
  Sex: Male
  Weight: 118 kg

DRUGS (2)
  1. CELEBREX [Suspect]
     Indication: OSTEOARTHRITIS
     Dosage: 200 MG DAILY
     Dates: start: 20130509
  2. BENICAR HCT [Interacting]
     Indication: HYPERTENSION
     Dosage: 40 MG DAILY

REACTIONS (3)
  - Drug interaction [Unknown]
  - Chest pain [Unknown]
  - Flatulence [Unknown]
